FAERS Safety Report 6991640-4 (Version None)
Quarter: 2010Q3

REPORT INFORMATION
  Report Type: 
  Country: None (occurrence: None)
  Receive Date: 20100915
  Receipt Date: 20100915
  Transmission Date: 20110219
  Serious: Yes (Other)
  Sender: FDA-Public Use
  Company Number: None

PATIENT
  Age: 58 Year
  Sex: Male
  Weight: 86.1834 kg

DRUGS (2)
  1. LOVENOX [Suspect]
     Indication: ACTIVATED PROTEIN C RESISTANCE
     Dosage: 135 MG QD SQ
     Route: 058
     Dates: start: 20060801, end: 20100914
  2. LOVENOX [Suspect]
     Indication: TREATMENT FAILURE
     Dosage: 135 MG QD SQ
     Route: 058
     Dates: start: 20060801, end: 20100914

REACTIONS (4)
  - MEDICATION ERROR [None]
  - NEEDLE ISSUE [None]
  - PRODUCT PACKAGING QUANTITY ISSUE [None]
  - SYRINGE ISSUE [None]
